FAERS Safety Report 6537809-4 (Version None)
Quarter: 2010Q1

REPORT INFORMATION
  Report Type: 
  Country: None (occurrence: None)
  Receive Date: 20100114
  Receipt Date: 20100106
  Transmission Date: 20100710
  Serious: Yes (Hospitalization, Other)
  Sender: FDA-Public Use
  Company Number: US-PFIZER INC-2009274337

PATIENT
  Sex: Male
  Weight: 88.4 kg

DRUGS (1)
  1. GEODON [Suspect]
     Indication: BIPOLAR DISORDER
     Dosage: UNK
     Dates: start: 20050101

REACTIONS (6)
  - DEPRESSION [None]
  - FEELING ABNORMAL [None]
  - MANIA [None]
  - MOOD SWINGS [None]
  - NO THERAPEUTIC RESPONSE [None]
  - SEDATION [None]
